FAERS Safety Report 9215930 (Version 1)
Quarter: 2013Q2

REPORT INFORMATION
  Report Type: Spontaneous
  Country: GB (occurrence: None)
  Receive Date: 20130403
  Receipt Date: 20130403
  Transmission Date: 20140414
  Serious: Yes (Other)
  Sender: FDA-Public Use
  Company Number: GB-MACLEODS PHARMA-000079

PATIENT
  Age: 91 Year
  Sex: Female
  Weight: 62 kg

DRUGS (9)
  1. DONEPEZIL (DONEPEZIL) [Suspect]
     Indication: DEMENTIA
     Route: 048
     Dates: start: 20130210
  2. ALENDRONIC ACID (ALENDRONIC ACID) [Concomitant]
  3. PARACETAMOL (PARACETAMOL) [Concomitant]
  4. MOVICOL [Concomitant]
  5. SIMVASTATIN (SIMVASTATIN) [Concomitant]
  6. ADCAL (ADCAL) [Concomitant]
  7. AMITRIPTYLINE (AMITRIPTYLINE) [Concomitant]
  8. CLOPIDOGREL (CLOPIDROGEL) [Concomitant]
  9. LANSOPRAZOLE (LANSOPRAZOLE) [Concomitant]

REACTIONS (8)
  - Decreased appetite [None]
  - Dizziness [None]
  - Headache [None]
  - Nausea [None]
  - Fatigue [None]
  - Fluid intake reduced [None]
  - Hypophagia [None]
  - Dehydration [None]
